FAERS Safety Report 8985380 (Version 1)
Quarter: 2012Q4

REPORT INFORMATION
  Report Type: 
  Country: GB (occurrence: GB)
  Receive Date: 20121226
  Receipt Date: 20121226
  Transmission Date: 20130627
  Serious: Yes (Other)
  Sender: FDA-Public Use
  Company Number: GB-PFIZER INC-2012323258

PATIENT
  Sex: Male

DRUGS (7)
  1. RAMIPRIL [Suspect]
     Indication: BLOOD CHOLESTEROL
     Dosage: 5 mg, UNK
  2. FLUVASTATIN [Concomitant]
     Dosage: UNK
  3. IMDUR [Concomitant]
     Dosage: UNK
  4. TILDIEM [Concomitant]
     Dosage: UNK
  5. BISOPROLOL [Concomitant]
     Dosage: UNK
  6. NICORANDIL [Concomitant]
     Dosage: UNK
  7. RAMIPRIL [Concomitant]
     Dosage: UNK

REACTIONS (6)
  - Capsule physical issue [Recovered/Resolved]
  - Pharyngeal oedema [Recovered/Resolved]
  - Swelling [Recovered/Resolved]
  - Nightmare [Recovered/Resolved]
  - Decreased appetite [Recovered/Resolved]
  - Drug ineffective [Unknown]
